FAERS Safety Report 21991697 (Version 2)
Quarter: 2023Q2

REPORT INFORMATION
  Report Type: Spontaneous
  Country: US (occurrence: US)
  Receive Date: 20230214
  Receipt Date: 20230508
  Transmission Date: 20230722
  Serious: Yes (Other)
  Sender: FDA-Public Use
  Company Number: US-GILEAD-2023-0616500

PATIENT
  Age: 31 Year
  Sex: Male

DRUGS (1)
  1. TRUVADA [Suspect]
     Active Substance: EMTRICITABINE\TENOFOVIR DISOPROXIL FUMARATE
     Indication: Prophylaxis against HIV infection
     Dosage: UNK
     Route: 048
     Dates: start: 20170116, end: 20200823

REACTIONS (3)
  - Osteonecrosis [Not Recovered/Not Resolved]
  - Skeletal injury [Unknown]
  - Tooth injury [Unknown]

NARRATIVE: CASE EVENT DATE: 20201001
